FAERS Safety Report 23853290 (Version 1)
Quarter: 2024Q2

REPORT INFORMATION
  Report Type: Spontaneous
  Country: US (occurrence: US)
  Receive Date: 20240514
  Receipt Date: 20240514
  Transmission Date: 20240716
  Serious: No
  Sender: FDA-Public Use
  Company Number: US-PFIZER INC-202400106770

PATIENT
  Age: 55 Year
  Sex: Female

DRUGS (1)
  1. IBRANCE [Suspect]
     Active Substance: PALBOCICLIB
     Dosage: 125  MG, CYCLIC (125 MG CAPS - 1 CAPSULE DAILY FOR 21 DAYS ON, THEN 7 DAYS OFF)
     Dates: start: 20231214

REACTIONS (1)
  - Alopecia [Recovering/Resolving]
